FAERS Safety Report 11929842 (Version 1)
Quarter: 2016Q1

REPORT INFORMATION
  Report Type: Spontaneous
  Country: US (occurrence: None)
  Receive Date: 20160119
  Receipt Date: 20160119
  Transmission Date: 20160526
  Serious: No
  Sender: FDA-Public Use
  Company Number: None

PATIENT

DRUGS (2)
  1. TYLENOL PMOR EXTRA STRG [Concomitant]
  2. IPRATROPIUM BROMIDE. [Suspect]
     Active Substance: IPRATROPIUM BROMIDE
     Indication: RHINORRHOEA
     Dosage: 0.60% 42 MCG/SPRAY?2 SPRAYS IN EACH NOSTRIL 2 TO 3 TIMES A DAY
     Route: 045
     Dates: start: 20160106

REACTIONS (1)
  - Gastrointestinal motility disorder [None]
